FAERS Safety Report 9367301 (Version 1)
Quarter: 2013Q2

REPORT INFORMATION
  Report Type: Spontaneous
  Country: AU (occurrence: AU)
  Receive Date: 20130625
  Receipt Date: 20130625
  Transmission Date: 20140414
  Serious: Yes (Death, Other)
  Sender: FDA-Public Use
  Company Number: AU-009507513-1306AUS011512

PATIENT
  Age: 26 Year
  Sex: Female

DRUGS (2)
  1. IMPLANON [Suspect]
     Dosage: UNK
     Route: 059
  2. SEROQUEL XR [Suspect]
     Dosage: 8000 MG, ONCE

REACTIONS (4)
  - Cardiac arrest [Fatal]
  - Pulmonary embolism [Fatal]
  - Overdose [Fatal]
  - Hallucination, olfactory [Unknown]
